FAERS Safety Report 23850411 (Version 4)
Quarter: 2024Q4

REPORT INFORMATION
  Report Type: Spontaneous
  Country: DE (occurrence: DE)
  Receive Date: 20240513
  Receipt Date: 20241126
  Transmission Date: 20250115
  Serious: Yes (Other)
  Sender: LUNDBECK
  Company Number: DE-SANOFI-02039906

PATIENT

DRUGS (2)
  1. SABRIL [Suspect]
     Active Substance: VIGABATRIN
     Indication: Epilepsy
     Dosage: UNK OLD SACHETS
     Route: 048
  2. SABRIL [Suspect]
     Active Substance: VIGABATRIN
     Dosage: UNK NEW SACHETS
     Route: 048

REACTIONS (3)
  - Epilepsy [Unknown]
  - Drug ineffective [Unknown]
  - Drug intolerance [Unknown]

NARRATIVE: CASE EVENT DATE: 20240101
